FAERS Safety Report 6975046 (Version 8)
Quarter: 2015Q1

REPORT INFORMATION
  Report Type: Report from Study
  Country: US (occurrence: US)
  Receive Date: 20071107
  Receipt Date: 20150219
  Transmission Date: 20150721
  Serious: Yes (Hospitalization)
  Sender: FDA-Public Use
  Company Number: US-BIOGENIDEC-2007BI022902

PATIENT
  Age: 57 Year
  Sex: Female

DRUGS (2)
  1. TYSABRI [Suspect]
     Active Substance: NATALIZUMAB
     Indication: MULTIPLE SCLEROSIS
     Route: 042
     Dates: start: 20140926
  2. TYSABRI [Suspect]
     Active Substance: NATALIZUMAB
     Indication: MULTIPLE SCLEROSIS
     Route: 042
     Dates: start: 20070329, end: 20071218

REACTIONS (13)
  - Periarthritis [Not Recovered/Not Resolved]
  - Cataract operation [Recovered/Resolved]
  - Memory impairment [Not Recovered/Not Resolved]
  - Heart rate irregular [Unknown]
  - Pericarditis infective [Recovered/Resolved]
  - Myocardial infarction [Recovered/Resolved]
  - Pericarditis [Recovered/Resolved]
  - Coronary artery occlusion [Recovered/Resolved]
  - Confusional state [Not Recovered/Not Resolved]
  - Dizziness [Unknown]
  - Drug dose omission [Not Recovered/Not Resolved]
  - Fatigue [Unknown]
  - Hepatic enzyme increased [Recovered/Resolved]

NARRATIVE: CASE EVENT DATE: 2007
